FAERS Safety Report 6484210-8 (Version None)
Quarter: 2009Q4

REPORT INFORMATION
  Report Type: 
  Country: None (occurrence: None)
  Receive Date: 20091209
  Receipt Date: 20091208
  Transmission Date: 20100525
  Serious: Yes (Life-Threatening, Hospitalization)
  Sender: FDA-Public Use
  Company Number: A0832587A

PATIENT
  Sex: Female
  Weight: 77.9 kg

DRUGS (7)
  1. ELTROMBOPAG [Suspect]
     Indication: THROMBOCYTOPENIA
     Dosage: 25MG PER DAY
     Route: 048
     Dates: start: 20091022, end: 20091123
  2. ELTROMBOPAG [Suspect]
     Dosage: 25MG PER DAY
     Route: 048
     Dates: start: 20090930, end: 20091021
  3. PEGASYS [Suspect]
     Dosage: 180MCG WEEKLY
     Route: 058
     Dates: start: 20091021, end: 20091123
  4. COPEGUS [Suspect]
     Route: 048
     Dates: start: 20091021, end: 20091123
  5. LACTULOSE [Concomitant]
     Indication: ENCEPHALOPATHY
     Dosage: 30ML PER DAY
     Route: 048
     Dates: start: 20091129
  6. THIAMINE [Concomitant]
     Dosage: 100MG PER DAY
     Route: 048
     Dates: start: 20091129
  7. VITAMIN K TAB [Concomitant]
     Dosage: 10MG PER DAY
     Route: 042
     Dates: start: 20091129

REACTIONS (4)
  - CONFUSIONAL STATE [None]
  - HALLUCINATION [None]
  - HEPATIC FAILURE [None]
  - JAUNDICE [None]
